FAERS Safety Report 6289666-1 (Version None)
Quarter: 2009Q3

REPORT INFORMATION
  Report Type: 
  Country: None (occurrence: None)
  Receive Date: 20090730
  Receipt Date: 20080605
  Transmission Date: 20100115
  Serious: No
  Sender: FDA-Public Use
  Company Number: US-BRISTOL-MYERS SQUIBB COMPANY-14217921

PATIENT
  Age: 63 Year
  Sex: Female
  Weight: 59 kg

DRUGS (8)
  1. COUMADIN [Interacting]
     Indication: ATRIAL FIBRILLATION
     Dosage: INITIAL DOSE 6-7MG DAILY.
  2. PROZAC [Interacting]
  3. CELEXA [Interacting]
  4. ASPIRIN [Suspect]
  5. VERAPAMIL [Suspect]
  6. XANAX [Concomitant]
  7. AMBIEN [Concomitant]
  8. MECLIZINE [Concomitant]

REACTIONS (6)
  - DECREASED APPETITE [None]
  - DEPRESSION [None]
  - DRUG INTERACTION [None]
  - FEELING ABNORMAL [None]
  - RASH MACULAR [None]
  - WEIGHT DECREASED [None]
